FAERS Safety Report 12403079 (Version 12)
Quarter: 2021Q3

REPORT INFORMATION
  Report Type: Other
  Country: CA (occurrence: CA)
  Receive Date: 20160525
  Receipt Date: 20210803
  Transmission Date: 20211014
  Serious: Yes (Hospitalization, Other)
  Sender: FDA-Public Use
  Company Number: CA-ROCHE-1762396

PATIENT
  Age: 76 Year
  Sex: Female

DRUGS (20)
  1. XOLAIR [Suspect]
     Active Substance: OMALIZUMAB
     Dosage: UNK
     Route: 058
     Dates: start: 20161208
  2. XOLAIR [Suspect]
     Active Substance: OMALIZUMAB
     Dosage: UNK
     Route: 058
     Dates: start: 20170915
  3. AZITROMYCINE [Concomitant]
     Active Substance: AZITHROMYCIN
  4. VENTOLIN [Concomitant]
     Active Substance: ALBUTEROL SULFATE
  5. APO?SALVENT [Concomitant]
     Active Substance: ALBUTEROL
  6. XOLAIR [Suspect]
     Active Substance: OMALIZUMAB
     Dosage: UNK
     Route: 058
     Dates: start: 20160421
  7. XOLAIR [Suspect]
     Active Substance: OMALIZUMAB
     Route: 058
     Dates: start: 20190215
  8. AVAPRO [Concomitant]
     Active Substance: IRBESARTAN
  9. XOLAIR [Suspect]
     Active Substance: OMALIZUMAB
     Dosage: UNK
     Route: 058
     Dates: start: 20170815
  10. XOLAIR [Suspect]
     Active Substance: OMALIZUMAB
     Route: 058
     Dates: start: 20190215
  11. ADVAIR HFA [Concomitant]
     Active Substance: FLUTICASONE PROPIONATE\SALMETEROL XINAFOATE
  12. XOLAIR [Suspect]
     Active Substance: OMALIZUMAB
     Dosage: UNK
     Route: 058
     Dates: start: 20160811
  13. XOLAIR [Suspect]
     Active Substance: OMALIZUMAB
     Indication: ASTHMA
     Route: 058
     Dates: start: 20111027
  14. XOLAIR [Suspect]
     Active Substance: OMALIZUMAB
     Dosage: UNK
     Route: 058
     Dates: start: 20160714
  15. XOLAIR [Suspect]
     Active Substance: OMALIZUMAB
     Dosage: UNK
     Route: 058
     Dates: start: 20170106
  16. XOLAIR [Suspect]
     Active Substance: OMALIZUMAB
     Route: 058
     Dates: start: 20190118
  17. SPIRIVA [Concomitant]
     Active Substance: TIOTROPIUM BROMIDE MONOHYDRATE
  18. XOLAIR [Suspect]
     Active Substance: OMALIZUMAB
     Route: 058
     Dates: start: 20180827
  19. ALENDRONATE [Concomitant]
     Active Substance: ALENDRONATE SODIUM
  20. XOLAIR [Suspect]
     Active Substance: OMALIZUMAB
     Dosage: UNK
     Route: 058
     Dates: start: 20150604

REACTIONS (7)
  - Fall [Unknown]
  - Cough [Unknown]
  - Tongue neoplasm malignant stage unspecified [Recovering/Resolving]
  - Blood pressure increased [Not Recovered/Not Resolved]
  - Skin ulcer [Unknown]
  - Synovial cyst [Unknown]
  - Bronchitis [Recovering/Resolving]

NARRATIVE: CASE EVENT DATE: 20150604
